FAERS Safety Report 17083118 (Version 3)
Quarter: 2020Q1

REPORT INFORMATION
  Report Type: Spontaneous
  Country: US (occurrence: US)
  Receive Date: 20191127
  Receipt Date: 20200110
  Transmission Date: 20200409
  Serious: Yes (Hospitalization, Other)
  Sender: FDA-Public Use
  Company Number: US-PFIZER INC-2019508380

PATIENT
  Age: 64 Year
  Sex: Female
  Weight: 89.36 kg

DRUGS (2)
  1. CHANTIX [Suspect]
     Active Substance: VARENICLINE TARTRATE
     Indication: SMOKING CESSATION THERAPY
     Dosage: UNK
  2. CARISOPRODOL. [Concomitant]
     Active Substance: CARISOPRODOL
     Dosage: 350 MG, 3X/DAY(350MG TABLET, ONE TABLET 3 TIMES A DAY BY MOUTH)
     Route: 048
     Dates: end: 20191212

REACTIONS (8)
  - Migraine [Not Recovered/Not Resolved]
  - Trigger finger [Recovered/Resolved]
  - Brain neoplasm [Not Recovered/Not Resolved]
  - Nasal injury [Recovered/Resolved]
  - Nausea [Recovered/Resolved]
  - Concussion [Recovered/Resolved]
  - Weight increased [Unknown]
  - Dizziness [Recovered/Resolved]

NARRATIVE: CASE EVENT DATE: 2019
